FAERS Safety Report 25678984 (Version 5)
Quarter: 2025Q4

REPORT INFORMATION
  Report Type: Report from Study
  Country: US (occurrence: US)
  Receive Date: 20250814
  Receipt Date: 20251229
  Transmission Date: 20260118
  Serious: No
  Sender: DECIPHERA PHARMACEUTICALS
  Company Number: US-DECIPHERA PHARMACEUTICALS LLC-2025US000930

PATIENT
  Age: 39 Year
  Sex: Female
  Weight: 55.392 kg

DRUGS (3)
  1. ROMVIMZA [Suspect]
     Active Substance: VIMSELTINIB
     Indication: Giant cell tumour of tendon sheath
     Dosage: 30 MILLIGRAM, TWICE WEEKLY
     Dates: start: 20250622, end: 2025
  2. ROMVIMZA [Suspect]
     Active Substance: VIMSELTINIB
     Dosage: 20 MILLIGRAM, TWICE WEEKLY (TUESDAYS AND FRIDAYS)
     Dates: start: 20250926, end: 2025
  3. ROMVIMZA [Suspect]
     Active Substance: VIMSELTINIB
     Dosage: 20 MILLIGRAM, TWICE WEEKLY (TUESDAYS AND FRIDAYS)
     Dates: start: 2025, end: 2025

REACTIONS (9)
  - Hepatic enzyme increased [Unknown]
  - Swelling face [Unknown]
  - Rash [Recovering/Resolving]
  - Rash pruritic [Not Recovered/Not Resolved]
  - Peripheral swelling [Not Recovered/Not Resolved]
  - Blood creatine phosphokinase MB increased [Unknown]
  - Illness [Unknown]
  - Dysphonia [Unknown]
  - Nasopharyngitis [Unknown]

NARRATIVE: CASE EVENT DATE: 20250101
